FAERS Safety Report 6011065-8 (Version None)
Quarter: 2008Q4

REPORT INFORMATION
  Report Type: 
  Country: None (occurrence: None)
  Receive Date: 20081218
  Receipt Date: 20081205
  Transmission Date: 20090506
  Serious: Yes (Disabling)
  Sender: FDA-Public Use
  Company Number: FR-CELGENEUS-056-20484-08110009

PATIENT
  Sex: Female
  Weight: 50 kg

DRUGS (2)
  1. INNOHEP [Suspect]
     Indication: PHLEBITIS
     Route: 058
     Dates: start: 20031127, end: 20031202
  2. PREVISCAN [Concomitant]
     Indication: OEDEMA
     Route: 065
     Dates: start: 20031128, end: 20040101

REACTIONS (11)
  - BURNING SENSATION [None]
  - ERYTHEMA [None]
  - EYELIDS PRURITUS [None]
  - GAMMOPATHY [None]
  - HAEMORRHAGE [None]
  - INTESTINAL HAEMORRHAGE [None]
  - MUSCULOSKELETAL STIFFNESS [None]
  - NEUROPATHY PERIPHERAL [None]
  - PAIN IN EXTREMITY [None]
  - PRURITUS GENITAL [None]
  - RETINAL HAEMORRHAGE [None]
